FAERS Safety Report 5741335-X (Version None)
Quarter: 2008Q2

REPORT INFORMATION
  Report Type: 
  Country: None (occurrence: None)
  Receive Date: 20080514
  Receipt Date: 20080429
  Transmission Date: 20081010
  Serious: Yes (Other)
  Sender: FDA-Public Use
  Company Number: 8024991

PATIENT
  Sex: Female
  Weight: 55 kg

DRUGS (5)
  1. KEPPRA [Suspect]
     Indication: PETIT MAL EPILEPSY
     Dosage: 500 MG 1/D PO
     Route: 048
     Dates: start: 20060501, end: 20070326
  2. KEPPRA [Suspect]
     Indication: PETIT MAL EPILEPSY
     Dosage: 500 MG 1/D PO
     Route: 048
     Dates: start: 20070403
  3. RIVOTRIL [Concomitant]
  4. PROZAC [Concomitant]
  5. SEGLOR [Concomitant]

REACTIONS (5)
  - CAESAREAN SECTION [None]
  - DRUG EXPOSURE DURING PREGNANCY [None]
  - GESTATIONAL DIABETES [None]
  - PREGNANCY [None]
  - PROLONGED LABOUR [None]
